FAERS Safety Report 20008616 (Version 1)
Quarter: 2021Q4

REPORT INFORMATION
  Report Type: Spontaneous
  Country: US (occurrence: US)
  Receive Date: 20211029
  Receipt Date: 20211029
  Transmission Date: 20220303
  Serious: Yes (Hospitalization, Other)
  Sender: FDA-Public Use
  Company Number: US-SA-SAC20211028000105

PATIENT
  Sex: Male

DRUGS (3)
  1. PLAVIX [Suspect]
     Active Substance: CLOPIDOGREL BISULFATE
     Dosage: UNK
     Dates: end: 202110
  2. ASPIRIN [Suspect]
     Active Substance: ASPIRIN
     Dosage: UNK
  3. ELIQUIS [Concomitant]
     Active Substance: APIXABAN
     Dosage: UNK

REACTIONS (11)
  - Loss of consciousness [Unknown]
  - Transient ischaemic attack [Unknown]
  - Cheilitis [Unknown]
  - Asthenia [Unknown]
  - Vertigo [Unknown]
  - Dizziness [Unknown]
  - Somnolence [Unknown]
  - Mouth swelling [Unknown]
  - Condition aggravated [Unknown]
  - Visual impairment [Unknown]
  - Corrective lens user [Unknown]
